FAERS Safety Report 6071843-6 (Version None)
Quarter: 2009Q1

REPORT INFORMATION
  Report Type: 
  Country: None (occurrence: None)
  Receive Date: 20090210
  Receipt Date: 20090204
  Transmission Date: 20090719
  Serious: Yes (Hospitalization)
  Sender: FDA-Public Use
  Company Number: PHBS2003JP08428

PATIENT
  Sex: Male
  Weight: 72 kg

DRUGS (13)
  1. TEGRETOL [Suspect]
     Indication: TRIGEMINAL NEURALGIA
     Dosage: 200 MG, BID
     Route: 048
     Dates: start: 20011117, end: 20011212
  2. PL GRAN. [Concomitant]
     Dosage: 10 MG/DAY
     Route: 065
     Dates: start: 20011231
  3. PASETOCIN [Concomitant]
     Dosage: 250 MG, BID
     Route: 048
     Dates: start: 20011205, end: 20011208
  4. NAPACETIN [Concomitant]
     Dosage: 600 MG/DAY
     Route: 048
     Dates: start: 20011205, end: 20011208
  5. TRANSAMIN [Concomitant]
     Dosage: 1500 MG/DAY
     Route: 048
     Dates: start: 20011205, end: 20011208
  6. POLARAMINE [Concomitant]
     Dosage: 6 MG/DAY
     Route: 048
     Dates: start: 20011205, end: 20011208
  7. LEBELBON [Concomitant]
     Dosage: 12 MG/DAY
     Route: 048
     Dates: start: 20011205, end: 20011208
  8. ISODINE [Concomitant]
     Dosage: 6 ML/DAY
     Route: 048
     Dates: start: 20011205, end: 20011212
  9. TARIVID ORAL [Concomitant]
     Dosage: 100 MG, TID
     Route: 048
     Dates: start: 20011208, end: 20011209
  10. MYCASAAL [Concomitant]
     Dosage: 250 MG, TID
     Route: 048
     Dates: start: 20011208, end: 20011209
  11. CALONAL [Concomitant]
     Dosage: 1 G, BID
     Route: 048
     Dates: start: 20011208, end: 20011209
  12. SISAAL [Concomitant]
     Route: 065
  13. FLOMOX [Concomitant]
     Route: 048

REACTIONS (13)
  - ARTHRALGIA [None]
  - DRUG RASH WITH EOSINOPHILIA AND SYSTEMIC SYMPTOMS [None]
  - EOSINOPHIL COUNT INCREASED [None]
  - FACE OEDEMA [None]
  - GENERALISED ERYTHEMA [None]
  - HUMAN HERPES VIRUS 6 SEROLOGY POSITIVE [None]
  - LYMPHADENOPATHY [None]
  - LYMPHOCYTE MORPHOLOGY ABNORMAL [None]
  - NASAL CONGESTION [None]
  - ORAL MUCOSAL ERUPTION [None]
  - PAIN [None]
  - PHARYNGITIS [None]
  - PYREXIA [None]
